FAERS Safety Report 21348343 (Version 1)
Quarter: 2022Q3

REPORT INFORMATION
  Report Type: Report from Study
  Country: CN (occurrence: None)
  Receive Date: 20220919
  Receipt Date: 20220919
  Transmission Date: 20221027
  Serious: Yes (Death)
  Sender: FDA-Public Use
  Company Number: CN-ROCHE-3173279

PATIENT
  Age: 53 Year
  Sex: Female
  Weight: 57 kg

DRUGS (26)
  1. MYCOPHENOLATE MOFETIL [Suspect]
     Active Substance: MYCOPHENOLATE MOFETIL
     Indication: Lupus nephritis
     Route: 048
     Dates: start: 20220309, end: 202203
  2. MYCOPHENOLATE MOFETIL [Suspect]
     Active Substance: MYCOPHENOLATE MOFETIL
     Route: 048
  3. MYCOPHENOLATE MOFETIL [Suspect]
     Active Substance: MYCOPHENOLATE MOFETIL
     Route: 048
     Dates: start: 20220629, end: 202207
  4. MYCOPHENOLATE MOFETIL [Suspect]
     Active Substance: MYCOPHENOLATE MOFETIL
     Dosage: SINGLE DOSE
     Route: 048
     Dates: start: 20220704, end: 202207
  5. MYCOPHENOLATE MOFETIL [Suspect]
     Active Substance: MYCOPHENOLATE MOFETIL
     Dosage: SINGLE DOSE
     Route: 048
     Dates: start: 20220704, end: 202207
  6. MYCOPHENOLATE MOFETIL [Suspect]
     Active Substance: MYCOPHENOLATE MOFETIL
     Route: 048
     Dates: start: 20220705, end: 202207
  7. MYCOPHENOLATE MOFETIL [Suspect]
     Active Substance: MYCOPHENOLATE MOFETIL
     Route: 048
     Dates: start: 20220726, end: 2022
  8. PREDNISONE ACETATE [Suspect]
     Active Substance: PREDNISONE ACETATE
     Indication: Lupus nephritis
     Route: 048
     Dates: start: 20220309, end: 202203
  9. PREDNISONE ACETATE [Suspect]
     Active Substance: PREDNISONE ACETATE
     Route: 048
     Dates: start: 20220323, end: 202205
  10. PREDNISONE ACETATE [Suspect]
     Active Substance: PREDNISONE ACETATE
     Route: 048
     Dates: start: 20220505, end: 202206
  11. PREDNISONE ACETATE [Suspect]
     Active Substance: PREDNISONE ACETATE
     Route: 048
     Dates: start: 20220623, end: 202206
  12. PREDNISONE ACETATE [Suspect]
     Active Substance: PREDNISONE ACETATE
     Route: 048
     Dates: start: 20220629, end: 202207
  13. PREDNISONE ACETATE [Suspect]
     Active Substance: PREDNISONE ACETATE
     Route: 048
     Dates: start: 20220705, end: 202207
  14. PREDNISONE ACETATE [Suspect]
     Active Substance: PREDNISONE ACETATE
     Route: 048
     Dates: start: 20220723, end: 2022
  15. VITAMIN E [Concomitant]
     Active Substance: .ALPHA.-TOCOPHEROL
     Route: 048
     Dates: start: 20220121, end: 2022
  16. CALCIUM CARBONATE\CHOLECALCIFEROL [Concomitant]
     Active Substance: CALCIUM CARBONATE\CHOLECALCIFEROL
     Indication: Osteoporosis prophylaxis
     Route: 048
     Dates: start: 20220121, end: 2022
  17. HUMAN GRANULOCYTE STIMULATING FACTOR NEEDLE (UNK INGREDIENTS) [Concomitant]
     Indication: Neutrophil count decreased
     Dosage: SINGLE DOSE
     Route: 058
     Dates: start: 20220616, end: 202206
  18. HUMAN GRANULOCYTE STIMULATING FACTOR NEEDLE (UNK INGREDIENTS) [Concomitant]
     Indication: White blood cell count decreased
     Dosage: SINGLE DOSE
     Route: 058
     Dates: start: 20220623, end: 202206
  19. HUMAN GRANULOCYTE STIMULATING FACTOR NEEDLE (UNK INGREDIENTS) [Concomitant]
     Dosage: SINGLE DOSE
     Route: 058
     Dates: start: 20220625, end: 202206
  20. HUMAN GRANULOCYTE STIMULATING FACTOR NEEDLE (UNK INGREDIENTS) [Concomitant]
     Dosage: SINGLE DOSE
     Route: 058
     Dates: start: 20220627, end: 202206
  21. HUMAN GRANULOCYTE STIMULATING FACTOR NEEDLE (UNK INGREDIENTS) [Concomitant]
     Dosage: SINGLE DOSE
     Route: 058
     Dates: start: 20220722, end: 202207
  22. HUMAN GRANULOCYTE STIMULATING FACTOR NEEDLE (UNK INGREDIENTS) [Concomitant]
     Dosage: SINGLE DOSE
     Route: 058
     Dates: start: 20220812, end: 202208
  23. HUMAN GRANULOCYTE STIMULATING FACTOR NEEDLE (UNK INGREDIENTS) [Concomitant]
     Dosage: SINGLE DOSE
     Route: 058
     Dates: start: 20220813, end: 202208
  24. HUMAN GRANULOCYTE STIMULATING FACTOR NEEDLE (UNK INGREDIENTS) [Concomitant]
     Dosage: SINGLE DOSE
     Route: 058
     Dates: start: 20220816, end: 202208
  25. FEBUXOSTAT [Concomitant]
     Active Substance: FEBUXOSTAT
     Indication: Hyperuricaemia
     Route: 048
     Dates: start: 20220505
  26. HYDROXYCHLOROQUINE SULFATE [Concomitant]
     Active Substance: HYDROXYCHLOROQUINE SULFATE
     Route: 048
     Dates: start: 202201

REACTIONS (2)
  - Pneumonia [Fatal]
  - Respiratory failure [Fatal]

NARRATIVE: CASE EVENT DATE: 20220815
